FAERS Safety Report 7171932-9 (Version None)
Quarter: 2010Q4

REPORT INFORMATION
  Report Type: 
  Country: None (occurrence: None)
  Receive Date: 20101217
  Receipt Date: 20101208
  Transmission Date: 20110411
  Serious: Yes (Other)
  Sender: FDA-Public Use
  Company Number: DE-MERCK-1010DEU00066

PATIENT
  Age: 83 Year
  Sex: Female

DRUGS (4)
  1. FOSAMAX PLUS D [Suspect]
     Indication: OSTEOPOROSIS
     Route: 048
     Dates: start: 20100903, end: 20101007
  2. ANASTROZOLE [Concomitant]
     Route: 048
  3. CHOLECALCIFEROL [Concomitant]
     Route: 048
  4. STRONTIUM RANELATE [Concomitant]
     Indication: OSTEOPOROSIS
     Route: 065

REACTIONS (1)
  - BREAST CANCER RECURRENT [None]
